FAERS Safety Report 19242402 (Version 2)
Quarter: 2021Q2

REPORT INFORMATION
  Report Type: Spontaneous
  Country: US (occurrence: US)
  Receive Date: 20210511
  Receipt Date: 20210517
  Transmission Date: 20210717
  Serious: No
  Sender: FDA-Public Use
  Company Number: US-SA-2018SA132906

PATIENT
  Age: 19 Year
  Sex: Female
  Weight: 55.33 kg

DRUGS (2)
  1. DUPIXENT [Suspect]
     Active Substance: DUPILUMAB
     Dosage: 300 MG,QOW
     Route: 058
     Dates: start: 202102
  2. DUPIXENT [Suspect]
     Active Substance: DUPILUMAB
     Indication: DERMATITIS ATOPIC
     Dosage: 300 MG,QOW
     Route: 058
     Dates: start: 201803

REACTIONS (2)
  - Injection site swelling [Recovered/Resolved]
  - Acne [Recovered/Resolved]

NARRATIVE: CASE EVENT DATE: 201803
